FAERS Safety Report 18147572 (Version 1)
Quarter: 2020Q3

REPORT INFORMATION
  Report Type: Report from Study
  Country: IT (occurrence: IT)
  Receive Date: 20200813
  Receipt Date: 20200813
  Transmission Date: 20201103
  Serious: Yes (Death)
  Sender: FDA-Public Use
  Company Number: IT-MYLANLABS-2020M1071586

PATIENT

DRUGS (2)
  1. CLARITHROMYCIN. [Suspect]
     Active Substance: CLARITHROMYCIN
     Indication: EXTRANODAL MARGINAL ZONE B-CELL LYMPHOMA (MALT TYPE)
     Dosage: 500 MILLIGRAM, BID LENALIDOMIDE AND CLARITHROMYCIN COMBINATION THERAPY (COURSE..
     Route: 065
  2. LENALIDOMIDE [Suspect]
     Active Substance: LENALIDOMIDE
     Indication: EXTRANODAL MARGINAL ZONE B-CELL LYMPHOMA (MALT TYPE)
     Dosage: 20 MILLIGRAM, QD LENALIDOMIDE AND CLARITHROMYCIN COMBINATION THERAPY (COURSE..
     Route: 065

REACTIONS (2)
  - Off label use [Unknown]
  - Infection [Fatal]
